FAERS Safety Report 5865340-8 (Version None)
Quarter: 2008Q3

REPORT INFORMATION
  Report Type: 
  Country: None (occurrence: None)
  Receive Date: 20080829
  Receipt Date: 20080821
  Transmission Date: 20090109
  Serious: Yes (Disabling)
  Sender: FDA-Public Use
  Company Number: GB-ASTRAZENECA-2008GB01598

PATIENT
  Age: 60 Year
  Sex: Male
  Weight: 118 kg

DRUGS (2)
  1. OMEPRAZOLE [Suspect]
     Indication: DYSPEPSIA
     Route: 048
     Dates: start: 20060301
  2. OMEPRAZOLE [Suspect]
     Dosage: DOSE REDUCED
     Route: 048
     Dates: end: 20080806

REACTIONS (1)
  - DEAFNESS UNILATERAL [None]
